FAERS Safety Report 9168044 (Version 1)
Quarter: 2013Q1

REPORT INFORMATION
  Report Type: Spontaneous
  Country: US (occurrence: US)
  Receive Date: 20130318
  Receipt Date: 20130318
  Transmission Date: 20140127
  Serious: Yes (Other)
  Sender: FDA-Public Use
  Company Number: US-ELI_LILLY_AND_COMPANY-US201210000629

PATIENT
  Sex: Female

DRUGS (2)
  1. FORTEO [Suspect]
     Indication: OSTEOPOROSIS
     Dosage: 20 UG, QD
     Route: 065
     Dates: start: 20120831, end: 20130110
  2. FORTEO [Suspect]
     Dosage: 20 UG, QD
     Route: 065
     Dates: start: 20120831, end: 20130110

REACTIONS (19)
  - Haemoptysis [Unknown]
  - Weight decreased [Unknown]
  - Gingival pain [Unknown]
  - Pain in jaw [Unknown]
  - Tooth disorder [Recovered/Resolved]
  - Pain [Not Recovered/Not Resolved]
  - Renal impairment [Unknown]
  - Blood calcium increased [Unknown]
  - Vitamin D increased [Unknown]
  - Pain [Unknown]
  - Dyspnoea [Unknown]
  - Headache [Unknown]
  - Neck pain [Unknown]
  - Mass [Unknown]
  - Gait disturbance [Unknown]
  - Asthenia [Unknown]
  - Nausea [Unknown]
  - Vomiting [Unknown]
  - Tooth disorder [Unknown]
